FAERS Safety Report 10046822 (Version 1)
Quarter: 2014Q1

REPORT INFORMATION
  Report Type: Spontaneous
  Country: US (occurrence: None)
  Receive Date: 20140328
  Receipt Date: 20140328
  Transmission Date: 20141002
  Serious: Yes (Hospitalization, Other)
  Sender: FDA-Public Use
  Company Number: None

PATIENT
  Age: 28 Year
  Sex: Female
  Weight: 87.09 kg

DRUGS (1)
  1. JUNEL FE [Suspect]
     Indication: CONTRACEPTION
     Dosage: ONE PILL  ONCE DAILY TAKEN BY MOUTH
     Route: 048
     Dates: start: 20131027, end: 20131121

REACTIONS (2)
  - Deep vein thrombosis [None]
  - Pulmonary embolism [None]
